FAERS Safety Report 15280327 (Version 1)
Quarter: 2018Q4

REPORT INFORMATION
  Report Type: Spontaneous
  Country: NL (occurrence: NL)
  Receive Date: 20180815
  Receipt Date: 20180815
  Transmission Date: 20190204
  Serious: Yes (Hospitalization)
  Sender: FDA-Public Use
  Company Number: NL-TEVA-2018-NL-941449

PATIENT
  Age: 55 Year
  Sex: Female

DRUGS (6)
  1. CETIRIZINE TABL OMH 10MG [Concomitant]
     Dosage: 10 MILLIGRAM DAILY; 1 DD 1
     Dates: start: 20050114
  2. TAMOXIFEN TABL 20MG [Concomitant]
     Dosage: 20 MILLIGRAM DAILY; 1 DD 1
     Dates: start: 20150708
  3. OXYCODON HCL TABL MVA 10MG [Concomitant]
     Active Substance: OXYCODONE HYDROCHLORIDE
     Dosage: 2 DD 1
     Dates: start: 20180604
  4. MOMETASON NSPR 50MCG/D [Concomitant]
     Dosage: 100 MICROGRAM DAILY; 1S2BN
     Dates: start: 20020409
  5. MACROGOL EN ELECTR PDR V DR [Concomitant]
     Dosage: 1 DOSAGE FORMS DAILY; 1 DD 1
     Dates: start: 20180604
  6. PANTOPRAZOL MAAGSAPRESISTENTE TABLET, 40 MG (MILLIGRAM) [Suspect]
     Active Substance: PANTOPRAZOLE SODIUM
     Indication: PRODUCT USED FOR UNKNOWN INDICATION
     Dosage: 40 MILLIGRAM DAILY; 1 DD 1
     Dates: start: 20120606

REACTIONS (1)
  - Osteoporosis [Recovering/Resolving]

NARRATIVE: CASE EVENT DATE: 2018
